FAERS Safety Report 9106668 (Version 2)
Quarter: 2013Q1

REPORT INFORMATION
  Report Type: Spontaneous
  Country: CA (occurrence: CA)
  Receive Date: 20130221
  Receipt Date: 20130227
  Transmission Date: 20140127
  Serious: Yes (Other)
  Sender: FDA-Public Use
  Company Number: PHHY2013CA016420

PATIENT
  Sex: Female

DRUGS (5)
  1. ACLASTA [Suspect]
     Indication: OSTEOPOROSIS
     Dosage: UNK UKN, ONCE A YEAR
     Route: 042
     Dates: start: 20120405
  2. HYDROMORPHONE [Concomitant]
  3. B12-VITAMIIN [Concomitant]
     Dosage: UNK UKN, ONCE A MOUTH
     Route: 030
  4. PAXIL [Concomitant]
  5. ATIVAN [Concomitant]
     Dosage: 1 MG, PRN

REACTIONS (20)
  - Tooth abscess [Unknown]
  - Gingival recession [Unknown]
  - Sinusitis [Unknown]
  - Impatience [Unknown]
  - Irritability [Unknown]
  - Groin pain [Unknown]
  - Insomnia [Unknown]
  - Fatigue [Unknown]
  - Headache [Unknown]
  - Nausea [Unknown]
  - Abdominal pain upper [Unknown]
  - Constipation [Unknown]
  - Back pain [Unknown]
  - Myalgia [Unknown]
  - Pain in extremity [Unknown]
  - Paraesthesia [Unknown]
  - Hypoaesthesia [Unknown]
  - Bone pain [Unknown]
  - Gastrooesophageal reflux disease [Unknown]
  - Hyperhidrosis [Unknown]
